FAERS Safety Report 11341471 (Version 1)
Quarter: 2015Q3

REPORT INFORMATION
  Report Type: Spontaneous
  Country: US (occurrence: US)
  Receive Date: 20150805
  Receipt Date: 20150805
  Transmission Date: 20151125
  Serious: No
  Sender: FDA-Public Use
  Company Number: US-JNJFOC-20150515113

PATIENT
  Sex: Male

DRUGS (4)
  1. PREDNISONE. [Concomitant]
     Active Substance: PREDNISONE
     Indication: PROSTATE CANCER METASTATIC
     Route: 065
  2. ABIRATERONE ACETATE [Suspect]
     Active Substance: ABIRATERONE ACETATE
     Indication: PROSTATE CANCER METASTATIC
     Route: 048
     Dates: start: 20110401, end: 20131231
  3. FINASTERIDE. [Concomitant]
     Active Substance: FINASTERIDE
     Route: 065
  4. DUTASTERIDE. [Concomitant]
     Active Substance: DUTASTERIDE
     Route: 065

REACTIONS (10)
  - Wrong technique in product usage process [Unknown]
  - Hypokalaemia [Unknown]
  - Hypertension [Unknown]
  - Fatigue [Unknown]
  - Blood creatinine increased [Unknown]
  - Prostatic specific antigen increased [Unknown]
  - Blood testosterone decreased [Unknown]
  - Aspartate aminotransferase increased [Unknown]
  - Hot flush [Unknown]
  - Alanine aminotransferase increased [Unknown]
